FAERS Safety Report 7552512-X (Version None)
Quarter: 2011Q2

REPORT INFORMATION
  Report Type: 
  Country: None (occurrence: None)
  Receive Date: 20110616
  Receipt Date: 20110606
  Transmission Date: 20111010
  Serious: Yes (Other)
  Sender: FDA-Public Use
  Company Number: US-BAYER-2011-048761

PATIENT
  Sex: Female

DRUGS (2)
  1. MIRENA [Suspect]
     Indication: CONTRACEPTION
     Dosage: 20 MCG/24HR, CONT
     Route: 015
     Dates: start: 20050614, end: 20100201
  2. MIRENA [Suspect]
     Dosage: 20 MCG/24HR, CONT (FOR 5 OR 6 MONTHS)
     Route: 015
     Dates: start: 20100101

REACTIONS (6)
  - PROCEDURAL PAIN [None]
  - MALAISE [None]
  - PAIN [None]
  - DEPRESSED MOOD [None]
  - UTERINE PERFORATION [None]
  - ASTHENIA [None]
